FAERS Safety Report 23739340 (Version 1)
Quarter: 2024Q2

REPORT INFORMATION
  Report Type: Spontaneous
  Country: US (occurrence: US)
  Receive Date: 20240413
  Receipt Date: 20240413
  Transmission Date: 20240716
  Serious: No
  Sender: FDA-Public Use
  Company Number: US-AMGEN-USASP2024073062

PATIENT
  Age: 68 Year
  Sex: Female

DRUGS (8)
  1. REPATHA [Suspect]
     Active Substance: EVOLOCUMAB
     Indication: Blood cholesterol increased
     Dosage: 140 MILLIGRAM, Q2WK
     Route: 058
  2. REPATHA [Suspect]
     Active Substance: EVOLOCUMAB
     Dosage: 140 MILLIGRAM, Q2WK
     Route: 058
  3. ALBUTEROL [Concomitant]
     Active Substance: ALBUTEROL
     Indication: Asthma
     Dosage: AS NECESSARY, (START DATE: 2014 OR 2015)
  4. VITAMINS [Concomitant]
     Active Substance: VITAMINS
     Dosage: UNK
  5. VITAMIN D [Concomitant]
     Active Substance: VITAMIN D NOS
  6. FISH OIL [Concomitant]
     Active Substance: FISH OIL
  7. COENZYME Q10 [Concomitant]
     Active Substance: DIETARY SUPPLEMENT\UBIDECARENONE
  8. PRALUENT [Concomitant]
     Active Substance: ALIROCUMAB
     Indication: Blood cholesterol increased
     Dosage: UNK

REACTIONS (1)
  - Product dose omission issue [Unknown]

NARRATIVE: CASE EVENT DATE: 20240405
